FAERS Safety Report 9927835 (Version 1)
Quarter: 2014Q1

REPORT INFORMATION
  Report Type: Spontaneous
  Country: FR (occurrence: None)
  Receive Date: 20140221
  Receipt Date: 20140221
  Transmission Date: 20141002
  Serious: Yes (Other)
  Sender: FDA-Public Use
  Company Number: 2183086

PATIENT
  Age: 79 Year
  Sex: Male

DRUGS (19)
  1. OXALIPLATIN [Suspect]
     Indication: CHEMOTHERAPY
     Dosage: CYCLICAL
     Route: 041
     Dates: start: 20131129, end: 20131129
  2. ENOXAPARIN SODIUM [Concomitant]
  3. TIOTROPIUM [Concomitant]
  4. PREDNISONE [Concomitant]
  5. HYDROCHLOROTHIAZIDE [Concomitant]
  6. METFORMINE [Concomitant]
  7. PANTOPRAZOLE [Concomitant]
  8. VALACICLOVIR [Concomitant]
  9. ALPRAZOLAM [Concomitant]
  10. AMLODIPINE [Concomitant]
  11. INSULIN [Concomitant]
  12. CARMELLOSE SODIUM [Concomitant]
  13. PICLOXYDINE [Concomitant]
  14. DOMPERIDONE [Concomitant]
  15. TRAMADOL [Concomitant]
  16. ONDANSETRON [Concomitant]
  17. METHYLPREDNISOLONE [Concomitant]
  18. EPIRUBICIN [Concomitant]
  19. TOPICAL /00806601/ [Concomitant]

REACTIONS (2)
  - Laryngeal oedema [None]
  - Dyspnoea [None]
